FAERS Safety Report 7104323-7 (Version None)
Quarter: 2010Q4

REPORT INFORMATION
  Report Type: 
  Country: None (occurrence: None)
  Receive Date: 20101115
  Receipt Date: 20100625
  Transmission Date: 20110411
  Serious: No
  Sender: FDA-Public Use
  Company Number: US-ALLERGAN-1008310US

PATIENT
  Age: 60 Year
  Sex: Female

DRUGS (7)
  1. BOTOX COSMETIC [Suspect]
     Indication: SKIN WRINKLING
     Dosage: UNK, SINGLE
     Route: 030
     Dates: start: 20100617, end: 20100617
  2. PREMARIN [Concomitant]
     Indication: HORMONE REPLACEMENT THERAPY
  3. PROMETRIUM [Concomitant]
     Indication: HORMONE REPLACEMENT THERAPY
  4. ASPIRIN [Concomitant]
  5. MULTI-VITAMIN [Concomitant]
  6. VITAMIN D [Concomitant]
  7. SYNTHROID [Concomitant]
     Indication: THYROIDECTOMY

REACTIONS (2)
  - EYE INJURY [None]
  - VISION BLURRED [None]
